FAERS Safety Report 5287155-4 (Version None)
Quarter: 2007Q2

REPORT INFORMATION
  Report Type: 
  Country: None (occurrence: None)
  Receive Date: 20070404
  Receipt Date: 20070323
  Transmission Date: 20071010
  Serious: Yes (Hospitalization)
  Sender: FDA-Public Use
  Company Number: FR-PFIZER INC-2007018440

PATIENT
  Age: 31 Year
  Sex: Female

DRUGS (7)
  1. ADRIBLASTINE [Suspect]
     Indication: NON-HODGKIN'S LYMPHOMA
     Dosage: DAILY DOSE:64MG
     Route: 042
     Dates: start: 20070119, end: 20070119
  2. ENDOXAN [Suspect]
     Indication: NON-HODGKIN'S LYMPHOMA
     Dosage: DAILY DOSE:940MG
     Route: 042
     Dates: start: 20070119, end: 20070119
  3. ONCOVIN [Suspect]
     Indication: NON-HODGKIN'S LYMPHOMA
     Dosage: DAILY DOSE:1.8MG
     Route: 042
     Dates: start: 20070119, end: 20070119
  4. MABTHERA [Suspect]
     Indication: NON-HODGKIN'S LYMPHOMA
     Dosage: DAILY DOSE:500MG
     Route: 042
     Dates: start: 20070119, end: 20070119
  5. DEXAMETHASONE [Suspect]
     Indication: NON-HODGKIN'S LYMPHOMA
     Dosage: DAILY DOSE:20MG
     Route: 042
     Dates: start: 20070119, end: 20070119
  6. DAFALGAN [Concomitant]
     Dosage: DAILY DOSE:3GRAM
     Dates: start: 20070112, end: 20070116
  7. EFFERALGAN CODEINE [Concomitant]
     Dosage: TEXT:2 TO 4 TABLETS
     Dates: start: 20070116, end: 20070120

REACTIONS (5)
  - ALANINE AMINOTRANSFERASE INCREASED [None]
  - ASPARTATE AMINOTRANSFERASE INCREASED [None]
  - BLOOD ALKALINE PHOSPHATASE INCREASED [None]
  - BLOOD LACTATE DEHYDROGENASE INCREASED [None]
  - GAMMA-GLUTAMYLTRANSFERASE INCREASED [None]
